FAERS Safety Report 25486521 (Version 5)
Quarter: 2025Q3

REPORT INFORMATION
  Report Type: Report from Study
  Country: EU (occurrence: EU)
  Receive Date: 20250627
  Receipt Date: 20250730
  Transmission Date: 20251020
  Serious: Yes (Life-Threatening, Hospitalization)
  Sender: BOEHRINGER INGELHEIM
  Company Number: EU-ROCHE-10000318271

PATIENT

DRUGS (3)
  1. NINTEDANIB [Suspect]
     Active Substance: NINTEDANIB
     Indication: Neoplasm malignant
     Dosage: ON 05-JUN-2025, PATIENT RECEIVED MOST RECENT DOSE (200 MG) OF NINTEDANIB PRIOR TO AE/SAE ONSET
     Route: 048
     Dates: start: 20250328
  2. NAPROXEN [Suspect]
     Active Substance: NAPROXEN
     Indication: Product used for unknown indication
  3. DOCETAXEL [Suspect]
     Active Substance: DOCETAXEL
     Indication: Neoplasm malignant
     Dosage: ON 20-MAY-2025, PATIENT RECEIVED MOST RECENT DOSE (140 MG) OF DOCETAXEL PRIOR TO AE/SAE ONSET
     Route: 042
     Dates: start: 20250327

REACTIONS (3)
  - Anaemia [Recovered/Resolved]
  - Duodenal ulcer [Recovered/Resolved]
  - Neuropathy peripheral [Not Recovered/Not Resolved]

NARRATIVE: CASE EVENT DATE: 20250608
